FAERS Safety Report 9279354 (Version 2)
Quarter: 2013Q2

REPORT INFORMATION
  Report Type: Spontaneous
  Country: US (occurrence: US)
  Receive Date: 20130508
  Receipt Date: 20130611
  Transmission Date: 20140414
  Serious: No
  Sender: FDA-Public Use
  Company Number: US-ASTRAZENECA-2013SE23266

PATIENT
  Age: 54 Year
  Sex: Male
  Weight: 81.6 kg

DRUGS (16)
  1. SYMBICORT PMDI [Suspect]
     Indication: CHRONIC OBSTRUCTIVE PULMONARY DISEASE
     Dosage: 80/4.5 MCG 2PUFF BID
     Route: 055
     Dates: start: 20120815
  2. SYMBICORT PMDI [Suspect]
     Indication: CHRONIC OBSTRUCTIVE PULMONARY DISEASE
     Dosage: 80/4.5 MCG 1PUFF BID
     Route: 055
  3. SYMBICORT PMDI [Suspect]
     Indication: CHRONIC OBSTRUCTIVE PULMONARY DISEASE
     Dosage: 80/4.5 MCG 2 PUFFS IN THE MORNING AND 1 PUFF IN THE EVENING
     Route: 055
  4. ATENOLOL [Suspect]
     Indication: HYPERTENSION
     Dosage: 80 OR 100 MG DAILY
     Route: 048
  5. ATENOLOL [Suspect]
     Indication: HYPERTENSION
     Route: 048
     Dates: start: 20130214
  6. NEXIUM [Suspect]
     Route: 048
  7. IBUPROFEN [Concomitant]
     Indication: BACK PAIN
     Route: 048
     Dates: start: 2009
  8. IBUPROFEN [Concomitant]
     Indication: BACK PAIN
     Dosage: 800 MG ONE TAB 3-4 TIMES DAILY AS REQUIRED
     Route: 048
     Dates: start: 20120516
  9. ZETIA [Concomitant]
     Indication: BLOOD CHOLESTEROL
     Route: 048
     Dates: start: 2010
  10. ZETIA [Concomitant]
     Indication: BLOOD CHOLESTEROL
     Route: 048
     Dates: start: 20120731
  11. LIPITOR [Concomitant]
     Indication: BLOOD CHOLESTEROL
     Route: 048
     Dates: start: 2010
  12. LIPITOR [Concomitant]
     Indication: BLOOD CHOLESTEROL
     Route: 048
     Dates: start: 20121213
  13. NYQUIL [Concomitant]
     Indication: INSOMNIA
     Route: 048
     Dates: start: 2003
  14. NYQUIL [Concomitant]
     Indication: INSOMNIA
     Route: 048
     Dates: start: 20120516
  15. ZANTAC [Concomitant]
     Route: 065
     Dates: start: 20130404
  16. PROAIR HFA [Concomitant]
     Dosage: 90 MCG/ACT TWO PUFFS EVERY FOUR HOUR- SIX HOURS
     Route: 065
     Dates: start: 20120907

REACTIONS (9)
  - Productive cough [Not Recovered/Not Resolved]
  - Gastrooesophageal reflux disease [Not Recovered/Not Resolved]
  - Aphonia [Not Recovered/Not Resolved]
  - Oropharyngeal pain [Unknown]
  - Helicobacter infection [Unknown]
  - Dysphonia [Unknown]
  - Heart rate irregular [Unknown]
  - Diarrhoea [Unknown]
  - Off label use [Unknown]
